FAERS Safety Report 22996087 (Version 2)
Quarter: 2023Q4

REPORT INFORMATION
  Report Type: Spontaneous
  Country: US (occurrence: US)
  Receive Date: 20230927
  Receipt Date: 20231108
  Transmission Date: 20240110
  Serious: No
  Sender: FDA-Public Use
  Company Number: US-LUNDBECK-DKLU3067559

PATIENT
  Age: 64 Year
  Sex: Female

DRUGS (5)
  1. VYEPTI [Suspect]
     Active Substance: EPTINEZUMAB-JJMR
     Indication: Migraine prophylaxis
     Route: 041
     Dates: start: 20230824
  2. VYEPTI [Suspect]
     Active Substance: EPTINEZUMAB-JJMR
     Indication: Migraine
  3. UBRELVY [Concomitant]
     Active Substance: UBROGEPANT
     Indication: Product used for unknown indication
     Route: 065
  4. LIDOCAINE [Concomitant]
     Active Substance: LIDOCAINE
     Indication: Product used for unknown indication
     Route: 061
  5. LIDOCAINE [Concomitant]
     Active Substance: LIDOCAINE
     Dosage: 800 ML
     Route: 065

REACTIONS (1)
  - Migraine [Unknown]
